FAERS Safety Report 6924843-5 (Version None)
Quarter: 2010Q3

REPORT INFORMATION
  Report Type: 
  Country: None (occurrence: None)
  Receive Date: 20100816
  Receipt Date: 20100629
  Transmission Date: 20110219
  Serious: Yes (Other)
  Sender: FDA-Public Use
  Company Number: GB-SOLVAY-00310004982

PATIENT
  Sex: Male

DRUGS (3)
  1. CALCICHEW D3 [Concomitant]
     Indication: OSTEOPENIA
     Dosage: DAILY DOSE:  UNKNOWN
     Route: 048
     Dates: start: 19991026
  2. TESTOSTERONE [Suspect]
     Indication: KLINEFELTER'S SYNDROME
     Dosage: DAILY DOSE:  UNKNOWN
     Route: 062
     Dates: start: 20031215
  3. TESTOSTERONE [Suspect]
     Dosage: DAILY DOSE:  UNKNOWN
     Route: 062

REACTIONS (7)
  - HAIR GROWTH ABNORMAL [None]
  - HYPERTONIA [None]
  - MUSCLE HYPERTROPHY [None]
  - NAIL GROWTH ABNORMAL [None]
  - NIGHTMARE [None]
  - OFF LABEL USE [None]
  - THERAPEUTIC RESPONSE UNEXPECTED [None]
